FAERS Safety Report 5521044-2 (Version None)
Quarter: 2007Q4

REPORT INFORMATION
  Report Type: 
  Country: None (occurrence: None)
  Receive Date: 20071119
  Receipt Date: 20071108
  Transmission Date: 20080405
  Serious: Yes (Hospitalization)
  Sender: FDA-Public Use
  Company Number: US-JNJFOC-20071104077

PATIENT
  Age: 54 Year
  Sex: Female
  Weight: 77.61 kg

DRUGS (13)
  1. ITRACONAZOLE [Suspect]
     Indication: FUNGAL INFECTION
     Route: 042
  2. ARGATROBAN [Suspect]
     Indication: HEPARIN-INDUCED THROMBOCYTOPENIA
     Dosage: 2 MCG/KG/MIN
     Route: 042
  3. ALBUTEROL [Concomitant]
     Route: 065
  4. DOCUSATE [Concomitant]
     Route: 065
  5. SENNA [Concomitant]
     Route: 065
  6. INSULIN [Concomitant]
     Route: 065
  7. CALCIUM CARBONATE [Concomitant]
     Route: 065
  8. PREDNISONE TAB [Concomitant]
     Route: 065
  9. METOCLOPRAMIDE [Concomitant]
     Route: 065
  10. MAALOX [Concomitant]
     Route: 065
  11. AMPHOTERICIN B [Concomitant]
     Route: 065
  12. TRAZODONE HCL [Concomitant]
     Route: 065
  13. OMEPRAZOLE [Concomitant]
     Route: 065

REACTIONS (2)
  - COAGULATION TIME PROLONGED [None]
  - HEPATIC ENZYME INCREASED [None]
